FAERS Safety Report 9720492 (Version 4)
Quarter: 2014Q1

REPORT INFORMATION
  Report Type: Spontaneous
  Country: US (occurrence: US)
  Receive Date: 20131129
  Receipt Date: 20140319
  Transmission Date: 20141002
  Serious: Yes (Hospitalization)
  Sender: FDA-Public Use
  Company Number: US-JNJFOC-20131111642

PATIENT
  Age: 70 Year
  Sex: Male

DRUGS (8)
  1. ZYTIGA [Suspect]
     Indication: PROSTATE CANCER
     Dosage: 250 MG X 4
     Route: 048
     Dates: start: 20130518, end: 20130614
  2. PREDNISONE [Suspect]
     Indication: PROSTATE CANCER
     Route: 048
     Dates: start: 20130515, end: 20130614
  3. ASPIRIN [Concomitant]
     Route: 065
  4. CALCIUM [Concomitant]
     Route: 065
  5. CELEBREX [Concomitant]
     Route: 065
  6. ENALAPRIL [Concomitant]
     Route: 065
  7. METOPROLOL [Concomitant]
     Route: 065
  8. SIMVASTATIN [Concomitant]
     Route: 065

REACTIONS (3)
  - Constipation [Unknown]
  - Nausea [Unknown]
  - Vomiting [Unknown]
